FAERS Safety Report 22128927 (Version 11)
Quarter: 2023Q4

REPORT INFORMATION
  Report Type: Report from Study
  Country: CL (occurrence: CL)
  Receive Date: 20230323
  Receipt Date: 20231107
  Transmission Date: 20240109
  Serious: Yes (Death, Hospitalization, Other)
  Sender: FDA-Public Use
  Company Number: CL-002147023-NVSC2023CL063237

PATIENT
  Age: 50 Year
  Sex: Female

DRUGS (5)
  1. KISQALI [Suspect]
     Active Substance: RIBOCICLIB
     Indication: Breast cancer
     Dosage: 600 MG, QD
     Route: 048
     Dates: start: 20230322
  2. KISQALI [Suspect]
     Active Substance: RIBOCICLIB
     Dosage: 600 MG, QD
     Route: 048
     Dates: start: 20230322
  3. KISQALI [Suspect]
     Active Substance: RIBOCICLIB
     Dosage: UNK
     Route: 065
     Dates: start: 20230419
  4. LETROZOLE [Suspect]
     Active Substance: LETROZOLE
     Indication: Breast cancer stage IV
     Dosage: 600 MG (D1-D21 EVERY 28 DAYS)
     Route: 065
     Dates: start: 20221209
  5. CALCIUM [Concomitant]
     Active Substance: CALCIUM
     Indication: Product used for unknown indication
     Dosage: UNK
     Route: 065
     Dates: start: 20221209

REACTIONS (19)
  - Acute respiratory failure [Fatal]
  - Cerebral thrombosis [Fatal]
  - Paralysis [Fatal]
  - Feeling abnormal [Fatal]
  - Lung neoplasm malignant [Fatal]
  - Pleural effusion [Unknown]
  - Lung disorder [Not Recovered/Not Resolved]
  - Pneumonia [Unknown]
  - Liver injury [Unknown]
  - Metastases to liver [Unknown]
  - Metastases to bone [Unknown]
  - Inflammation [Unknown]
  - Dyslipidaemia [Unknown]
  - Lymphadenopathy mediastinal [Unknown]
  - Aphonia [Unknown]
  - Throat clearing [Unknown]
  - Nasopharyngitis [Unknown]
  - Oropharyngeal pain [Unknown]
  - Cough [Recovering/Resolving]

NARRATIVE: CASE EVENT DATE: 20230810
